FAERS Safety Report 19071046 (Version 1)
Quarter: 2021Q1

REPORT INFORMATION
  Report Type: Spontaneous
  Country: US (occurrence: US)
  Receive Date: 20210330
  Receipt Date: 20210330
  Transmission Date: 20210420
  Serious: No
  Sender: FDA-Public Use
  Company Number: US-DRREDDYS-USA/USA/21/0132952

PATIENT
  Age: 15 Year
  Sex: Female

DRUGS (1)
  1. ZENATANE [Suspect]
     Active Substance: ISOTRETINOIN
     Indication: PRODUCT USED FOR UNKNOWN INDICATION
     Dosage: 9/19/2020 2:19:17 PM,10/23/2020 4:41:47 PM,11/20/2020 2:33:54 PM,12/26/2020 9:29:29 AM,12/26/2020 9:
     Route: 048

REACTIONS (1)
  - Adverse drug reaction [Unknown]
